FAERS Safety Report 25181937 (Version 2)
Quarter: 2025Q2

REPORT INFORMATION
  Report Type: Spontaneous
  Country: BG (occurrence: BG)
  Receive Date: 20250410
  Receipt Date: 20250425
  Transmission Date: 20250716
  Serious: Yes (Hospitalization)
  Sender: TEVA
  Company Number: BG-TEVA-VS-3318122

PATIENT
  Age: 64 Year
  Sex: Female

DRUGS (9)
  1. VALSARTAN [Suspect]
     Active Substance: VALSARTAN
     Indication: Hypertension
     Dosage: HALF A TABLET IN THE MORNING
     Route: 065
     Dates: start: 202304
  2. MOXONIDINE [Suspect]
     Active Substance: MOXONIDINE
     Indication: Hypertension
     Route: 065
  3. BISOPROLOL [Suspect]
     Active Substance: BISOPROLOL
     Indication: Hypertension
     Dosage: HALF A TABLET IN THE MORNING, FUMARATE
     Route: 065
     Dates: start: 202304
  4. BETAHISTINE [Concomitant]
     Active Substance: BETAHISTINE
     Indication: Product used for unknown indication
     Dosage: ONE IN THE MORNING AND ONE IN THE EVENING
     Route: 065
     Dates: start: 202304
  5. CHLORTHALIDONE [Suspect]
     Active Substance: CHLORTHALIDONE
     Indication: Hypertension
     Dosage: ONCE IN THE MORNING
     Route: 065
     Dates: start: 202304
  6. SPIRONOLACTONE [Suspect]
     Active Substance: SPIRONOLACTONE
     Indication: Hypertension
     Dosage: ONCE IN THE MORNING
     Route: 065
     Dates: start: 202304
  7. CLOPIDOGREL [Concomitant]
     Active Substance: CLOPIDOGREL BISULFATE
     Indication: Vertebrobasilar stroke
     Dosage: ONCE IN THE MORNING
     Route: 065
     Dates: start: 202304
  8. ROSUVASTATIN [Suspect]
     Active Substance: ROSUVASTATIN
     Indication: Vertebrobasilar stroke
     Dosage: ONCE IN THE EVENING
     Route: 065
     Dates: start: 202304
  9. COTRIMOXAZOLE [Concomitant]
     Active Substance: SULFAMETHOXAZOLE\TRIMETHOPRIM
     Indication: Chronic granulomatous disease

REACTIONS (2)
  - Lichen planopilaris [Recovering/Resolving]
  - Drug ineffective [Unknown]
